FAERS Safety Report 5745284-2 (Version None)
Quarter: 2008Q2

REPORT INFORMATION
  Report Type: 
  Country: None (occurrence: None)
  Receive Date: 20080521
  Receipt Date: 20080512
  Transmission Date: 20081010
  Serious: Yes (Other)
  Sender: FDA-Public Use
  Company Number: JP-JNJFOC-20080302911

PATIENT
  Sex: Female

DRUGS (6)
  1. FINIBAX [Suspect]
     Route: 041
  2. FINIBAX [Suspect]
     Route: 041
  3. FINIBAX [Suspect]
     Indication: PNEUMONIA
     Route: 041
  4. NEOPHYLLIN INJECTION [Concomitant]
     Indication: ASTHMA PROPHYLAXIS
     Route: 065
  5. NEOPHYLLIN INJECTION [Concomitant]
     Indication: PNEUMONIA
     Route: 065
  6. THYRADIN S [Concomitant]
     Route: 048

REACTIONS (3)
  - LIVER DISORDER [None]
  - PNEUMONIA STAPHYLOCOCCAL [None]
  - SUPERINFECTION [None]
